FAERS Safety Report 5072719-3 (Version None)
Quarter: 2006Q3

REPORT INFORMATION
  Report Type: 
  Country: None (occurrence: None)
  Receive Date: 20060801
  Receipt Date: 20060721
  Transmission Date: 20061208
  Serious: Yes (Other)
  Sender: FDA-Public Use
  Company Number: 227873

PATIENT
  Age: 80 Year
  Sex: Male

DRUGS (1)
  1. RITUXAN [Suspect]
     Dates: end: 20040217

REACTIONS (2)
  - BONE MARROW TOXICITY [None]
  - NEUTROPENIA [None]
